FAERS Safety Report 5839834-5 (Version None)
Quarter: 2008Q3

REPORT INFORMATION
  Report Type: 
  Country: None (occurrence: None)
  Receive Date: 20080807
  Receipt Date: 20080807
  Transmission Date: 20090109
  Serious: No
  Sender: FDA-Public Use
  Company Number: None

PATIENT
  Age: 75 Year
  Sex: Female
  Weight: 75.2971 kg

DRUGS (9)
  1. CIPROFLOXACIN [Suspect]
     Indication: COLITIS
     Dosage: 1 TABLET TWICE DAILY ORAL
     Route: 048
     Dates: start: 20080409
  2. CIPROFLOXACIN [Suspect]
     Indication: DIARRHOEA
     Dosage: 1 TABLET TWICE DAILY ORAL
     Route: 048
     Dates: start: 20080409
  3. CIPROFLOXACIN [Suspect]
     Indication: DIVERTICULITIS
     Dosage: 1 TABLET TWICE DAILY ORAL
     Route: 048
     Dates: start: 20080409
  4. CIPROFLOXACIN [Suspect]
     Indication: COLITIS
     Dosage: 1 TABLET TWICE DAILY ORAL
     Route: 048
     Dates: start: 20080320
  5. CIPROFLOXACIN [Suspect]
     Indication: DIARRHOEA
     Dosage: 1 TABLET TWICE DAILY ORAL
     Route: 048
     Dates: start: 20080320
  6. CIPROFLOXACIN [Suspect]
     Indication: DIVERTICULITIS
     Dosage: 1 TABLET TWICE DAILY ORAL
     Route: 048
     Dates: start: 20080320
  7. CIPROFLOXACIN [Suspect]
     Indication: COLITIS
     Dosage: 1 TABLET TWICE DAILY ORAL
     Route: 048
     Dates: start: 20080616
  8. CIPROFLOXACIN [Suspect]
     Indication: DIARRHOEA
     Dosage: 1 TABLET TWICE DAILY ORAL
     Route: 048
     Dates: start: 20080616
  9. CIPROFLOXACIN [Suspect]
     Indication: DIVERTICULITIS
     Dosage: 1 TABLET TWICE DAILY ORAL
     Route: 048
     Dates: start: 20080616

REACTIONS (6)
  - ARTHRITIS [None]
  - BACTERIA STOOL IDENTIFIED [None]
  - CLOSTRIDIAL INFECTION [None]
  - DIVERTICULITIS [None]
  - GAIT DISTURBANCE [None]
  - TENDONITIS [None]
